FAERS Safety Report 12494217 (Version 1)
Quarter: 2016Q2

REPORT INFORMATION
  Report Type: Spontaneous
  Country: US (occurrence: US)
  Receive Date: 20160623
  Receipt Date: 20160623
  Transmission Date: 20160815
  Serious: Yes (Hospitalization)
  Sender: FDA-Public Use
  Company Number: US-ASTRAZENECA-2016SE52028

PATIENT
  Sex: Female

DRUGS (5)
  1. ADVAIR DISKUS [Interacting]
     Active Substance: FLUTICASONE PROPIONATE\SALMETEROL XINAFOATE
     Indication: ASTHMA
     Dosage: 1 PUFF, BID, INHALED
     Route: 065
  2. VENTOLIN HFA [Interacting]
     Active Substance: ALBUTEROL SULFATE
     Indication: DYSPNOEA
     Dosage: 2 PUFF, BID, INHALED
     Route: 065
  3. ACCUPRIL(QUINAPRIL) [Concomitant]
  4. ATENOLOL. [Concomitant]
     Active Substance: ATENOLOL
  5. SYMBICORT [Suspect]
     Active Substance: BUDESONIDE\FORMOTEROL FUMARATE DIHYDRATE
     Route: 055

REACTIONS (2)
  - Asthma [Unknown]
  - Drug dispensing error [Unknown]
